FAERS Safety Report 9128335 (Version 1)
Quarter: 2013Q1

REPORT INFORMATION
  Report Type: Spontaneous
  Country: US (occurrence: US)
  Receive Date: 20130228
  Receipt Date: 20130228
  Transmission Date: 20140127
  Serious: No
  Sender: FDA-Public Use
  Company Number: US-ABBOTT-12P-163-1029448-00

PATIENT
  Sex: Male
  Weight: 80.81 kg

DRUGS (5)
  1. ANDROGEL [Suspect]
     Indication: BLOOD TESTOSTERONE DECREASED
     Dates: start: 201209
  2. SIMVASTATIN [Concomitant]
     Indication: BLOOD CHOLESTEROL INCREASED
  3. BABY ASPIRIN [Concomitant]
     Indication: PROPHYLAXIS
  4. BABY ASPIRIN [Concomitant]
     Indication: CARDIAC DISORDER
  5. CIALIS [Concomitant]
     Indication: SEXUAL DYSFUNCTION

REACTIONS (2)
  - Alopecia [Not Recovered/Not Resolved]
  - Drug ineffective [Not Recovered/Not Resolved]
